FAERS Safety Report 5666611-0 (Version None)
Quarter: 2008Q1

REPORT INFORMATION
  Report Type: 
  Country: None (occurrence: None)
  Receive Date: 20080315
  Receipt Date: 20071220
  Transmission Date: 20080703
  Serious: No
  Sender: FDA-Public Use
  Company Number: US-ABBOTT-07P-163-0431368-00

PATIENT
  Sex: Male
  Weight: 102.3 kg

DRUGS (3)
  1. HUMIRA [Suspect]
     Indication: CROHN'S DISEASE
     Route: 058
     Dates: start: 20061201
  2. MESALAMINE [Concomitant]
     Indication: CROHN'S DISEASE
     Route: 048
  3. CHOLESTYRAMINE [Concomitant]
     Indication: DIARRHOEA
     Route: 048

REACTIONS (1)
  - SINUSITIS [None]
